FAERS Safety Report 4548253-3 (Version None)
Quarter: 2005Q1

REPORT INFORMATION
  Report Type: 
  Country: None (occurrence: None)
  Receive Date: 20050106
  Receipt Date: 20050106
  Transmission Date: 20050727
  Serious: Yes (Life-Threatening, Hospitalization)
  Sender: FDA-Public Use
  Company Number: None

PATIENT
  Sex: Female
  Weight: 54 kg

DRUGS (3)
  1. TEMOZOLOMIDE 100MG PO [Suspect]
     Indication: GLIOBLASTOMA
     Dosage: 100MG PO DAILY
     Route: 048
     Dates: start: 20041109, end: 20041208
  2. ACYCLOVIR [Suspect]
     Indication: HERPES ZOSTER
     Dosage: 800 MG 5X / DAY
     Route: 048
     Dates: start: 20041202, end: 20041208
  3. RADIATION THERAPY [Concomitant]

REACTIONS (6)
  - EPISTAXIS [None]
  - HERPES ZOSTER [None]
  - PLATELET COUNT DECREASED [None]
  - PYREXIA [None]
  - SKIN ULCER [None]
  - WHITE BLOOD CELL COUNT DECREASED [None]
